FAERS Safety Report 15724970 (Version 1)
Quarter: 2018Q4

REPORT INFORMATION
  Report Type: Spontaneous
  Country: IT (occurrence: IT)
  Receive Date: 20181214
  Receipt Date: 20181214
  Transmission Date: 20190205
  Serious: Yes (Disabling)
  Sender: FDA-Public Use
  Company Number: IT-DSJP-DSE-2018-153067

PATIENT

DRUGS (1)
  1. LIXIANA [Suspect]
     Active Substance: EDOXABAN TOSYLATE
     Dosage: 30 MG, QD
     Route: 048

REACTIONS (4)
  - Headache [Unknown]
  - Vertigo [Unknown]
  - Vomiting [Unknown]
  - Speech disorder [Unknown]

NARRATIVE: CASE EVENT DATE: 20181124
